FAERS Safety Report 20564381 (Version 2)
Quarter: 2022Q1

REPORT INFORMATION
  Report Type: Spontaneous
  Country: CN (occurrence: CN)
  Receive Date: 20220308
  Receipt Date: 20220314
  Transmission Date: 20220423
  Serious: Yes (Death, Other)
  Sender: FDA-Public Use
  Company Number: CN-BoehringerIngelheim-2022-BI-156037

PATIENT
  Age: 76 Year
  Sex: Male

DRUGS (2)
  1. ALTEPLASE [Suspect]
     Active Substance: ALTEPLASE
     Indication: Thrombolysis
     Route: 042
     Dates: start: 202202, end: 202202
  2. ALTEPLASE [Suspect]
     Active Substance: ALTEPLASE
     Indication: Cerebral infarction
     Dosage: MORE THAN 40 MG,
     Route: 042
     Dates: start: 20220214, end: 20220214

REACTIONS (5)
  - Pneumonia [Fatal]
  - Cardiac failure [Fatal]
  - Basal ganglia haemorrhage [Recovering/Resolving]
  - Product quality issue [Unknown]
  - Haemorrhage intracranial [Unknown]

NARRATIVE: CASE EVENT DATE: 20220201
